FAERS Safety Report 8555436-4 (Version None)
Quarter: 2012Q3

REPORT INFORMATION
  Report Type: 
  Country: None (occurrence: None)
  Receive Date: 20120731
  Receipt Date: 20110825
  Transmission Date: 20120928
  Serious: Yes (Other)
  Sender: FDA-Public Use
  Company Number: US-ASTRAZENECA-2011SE12483

PATIENT
  Sex: Female
  Weight: 156.5 kg

DRUGS (9)
  1. KLONOPIN [Concomitant]
     Dosage: 2 MG BID AND 1.5 MG HS
     Dates: start: 20030618
  2. LEXAPRO [Concomitant]
     Dates: start: 20030813
  3. SEROQUEL [Suspect]
     Indication: INSOMNIA
     Dosage: TAKE  TWO TABLETS AT NIGHT AND 2 TABS REPEAT
     Route: 048
     Dates: start: 20030813
  4. PHENERGAN HCL [Concomitant]
     Dosage: PRN
     Dates: start: 20030618, end: 20030820
  5. GEODON [Concomitant]
     Dosage: 60 MG TO 120 MG
     Dates: start: 20030813
  6. TOPROL-XL [Concomitant]
     Dates: start: 20030618
  7. PROZAC [Concomitant]
     Dosage: 40 MG TO 60 MG
     Dates: start: 20030618
  8. GEODON [Concomitant]
     Dosage: 6/60 TWO PO Q DAY
     Dates: start: 20030618
  9. KLONOPIN [Concomitant]
     Dosage: 3.5 MG AM, 3.5 MG AT 4 PM AND 3 MG HS
     Dates: start: 20030813, end: 20030820

REACTIONS (4)
  - PANCREATITIS [None]
  - TYPE 2 DIABETES MELLITUS [None]
  - DIABETIC COMA [None]
  - INSULIN RESISTANCE [None]
